FAERS Safety Report 7772335-6 (Version None)
Quarter: 2011Q3

REPORT INFORMATION
  Report Type: 
  Country: None (occurrence: None)
  Receive Date: 20110922
  Receipt Date: 20100418
  Transmission Date: 20111222
  Serious: No
  Sender: FDA-Public Use
  Company Number: US-ASTRAZENECA-2008UW07388

PATIENT
  Age: 424 Month
  Sex: Male
  Weight: 104.8 kg

DRUGS (4)
  1. SEROQUEL [Suspect]
     Indication: ANXIETY DISORDER
     Route: 048
     Dates: start: 20060215
  2. SEROQUEL [Suspect]
     Route: 048
  3. LEXAPRO [Concomitant]
     Dates: start: 20060215
  4. LISINOPRIL [Concomitant]
     Dates: start: 20061128

REACTIONS (6)
  - DIABETES MELLITUS [None]
  - ADVERSE DRUG REACTION [None]
  - TYPE 2 DIABETES MELLITUS [None]
  - BLOOD CHOLESTEROL INCREASED [None]
  - HYPERTENSION [None]
  - PHARYNGITIS STREPTOCOCCAL [None]
